FAERS Safety Report 4642757-0 (Version None)
Quarter: 2005Q2

REPORT INFORMATION
  Report Type: 
  Country: None (occurrence: None)
  Receive Date: 20050420
  Receipt Date: 20050406
  Transmission Date: 20051028
  Serious: Yes (Life-Threatening)
  Sender: FDA-Public Use
  Company Number: 106367ISR

PATIENT
  Age: 70 Year
  Sex: Female

DRUGS (5)
  1. FLUOROURACIL [Suspect]
     Dosage: INTRAVENOUS (NOS)
     Route: 042
     Dates: start: 20041129
  2. METFORMIN HCL [Concomitant]
  3. VERAPAMIL HYDROCHLORIDE [Concomitant]
  4. THEOPHYLLINE [Concomitant]
  5. GLIMEPIRIDE [Concomitant]

REACTIONS (4)
  - ASTHENIA [None]
  - CYTOLYTIC HEPATITIS [None]
  - HEPATOTOXICITY [None]
  - PYREXIA [None]
